FAERS Safety Report 23234653 (Version 1)
Quarter: 2023Q4

REPORT INFORMATION
  Report Type: Report from Study
  Country: US (occurrence: US)
  Receive Date: 20231128
  Receipt Date: 20231128
  Transmission Date: 20240109
  Serious: Yes (Other)
  Sender: FDA-Public Use
  Company Number: US-EXELIXIS-CABO-23070845

PATIENT
  Sex: Male

DRUGS (2)
  1. CABOMETYX [Suspect]
     Active Substance: CABOZANTINIB S-MALATE
     Indication: Neuroendocrine carcinoma metastatic
     Dosage: 60 MG, QD
     Route: 048
  2. CABOMETYX [Suspect]
     Active Substance: CABOZANTINIB S-MALATE
     Dosage: 40 MG, QD (TAKE 2 TABLETS BY MOUTH DAILY) (60MG TABLETS AND HE CUTS OFF A PIECE OF THE TABLET SO HE
     Route: 048

REACTIONS (5)
  - Colitis [Unknown]
  - Tremor [Unknown]
  - Muscle atrophy [Unknown]
  - Wrong technique in product usage process [Unknown]
  - Off label use [Unknown]
